FAERS Safety Report 10268886 (Version 2)
Quarter: 2014Q2

REPORT INFORMATION
  Report Type: Spontaneous
  Country: US (occurrence: US)
  Receive Date: 20140630
  Receipt Date: 20140630
  Transmission Date: 20141212
  Serious: Yes (Hospitalization, Other)
  Sender: FDA-Public Use
  Company Number: US-009507513-2010SP003964

PATIENT
  Sex: Female
  Weight: 83.92 kg

DRUGS (3)
  1. NUVARING [Suspect]
     Indication: CONTRACEPTION
     Route: 067
     Dates: start: 20090322, end: 20090918
  2. TOPROL XL TABLETS [Suspect]
     Indication: PRODUCT USED FOR UNKNOWN INDICATION
     Dates: end: 20091013
  3. VITAMINS (UNSPECIFIED) [Concomitant]
     Dosage: UNK UNK, QD
     Dates: start: 2008

REACTIONS (10)
  - Cardiac aneurysm [Unknown]
  - Chest pain [Unknown]
  - Cerebral infarction [Recovered/Resolved]
  - Hypertension [Unknown]
  - Thrombosis [Unknown]
  - Tricuspid valve incompetence [Unknown]
  - Hemiparesis [Recovered/Resolved]
  - Blood triglycerides increased [Unknown]
  - Fatigue [Unknown]
  - Malaise [Unknown]
